FAERS Safety Report 8206078-1 (Version None)
Quarter: 2012Q1

REPORT INFORMATION
  Report Type: 
  Country: None (occurrence: None)
  Receive Date: 20120313
  Receipt Date: 20120229
  Transmission Date: 20120608
  Serious: Yes (Hospitalization)
  Sender: FDA-Public Use
  Company Number: FR-MYLANLABS-2012S1004571

PATIENT
  Age: 31 Year
  Sex: Male

DRUGS (9)
  1. OXYCODONE HCL [Suspect]
     Indication: PRODUCT USED FOR UNKNOWN INDICATION
     Route: 048
     Dates: start: 20110401, end: 20120204
  2. ALPRAZOLAM [Suspect]
     Indication: PRODUCT USED FOR UNKNOWN INDICATION
     Dates: start: 20110401
  3. VINCRISTINE [Suspect]
     Dates: start: 20110411
  4. OXYCONTIN [Suspect]
     Indication: PRODUCT USED FOR UNKNOWN INDICATION
     Dates: start: 20110401, end: 20120204
  5. VINCRISTINE [Suspect]
     Dates: start: 20120131
  6. IFOSFAMIDE [Suspect]
     Dates: start: 20120131
  7. ACTINOMYCINES [Suspect]
     Dates: start: 20110411
  8. ACTINOMYCINES [Suspect]
     Dates: start: 20120131
  9. IFOSFAMIDE [Suspect]
     Dates: start: 20110411

REACTIONS (1)
  - HYPOTHERMIA [None]
